FAERS Safety Report 6818399-5 (Version None)
Quarter: 2010Q3

REPORT INFORMATION
  Report Type: 
  Country: None (occurrence: None)
  Receive Date: 20100706
  Receipt Date: 20080110
  Transmission Date: 20110219
  Serious: No
  Sender: FDA-Public Use
  Company Number: US-PFIZER INC-2008003468

PATIENT
  Sex: Female
  Weight: 11.4 kg

DRUGS (1)
  1. ZITHROMAX [Suspect]
     Indication: PNEUMONIA
     Dates: start: 20080107, end: 20080108

REACTIONS (1)
  - URTICARIA [None]
